FAERS Safety Report 6772177-4 (Version None)
Quarter: 2010Q2

REPORT INFORMATION
  Report Type: 
  Country: None (occurrence: None)
  Receive Date: 20100616
  Receipt Date: 20100607
  Transmission Date: 20101027
  Serious: Yes (Other)
  Sender: FDA-Public Use
  Company Number: PHHY2010US22025

PATIENT
  Sex: Female
  Weight: 50 kg

DRUGS (5)
  1. RECLAST [Suspect]
     Indication: OSTEOPOROSIS
     Dosage: 5 MG
     Route: 042
     Dates: start: 20080514
  2. RECLAST [Suspect]
     Dosage: 5 MG
     Route: 042
     Dates: start: 20090101
  3. IMMUNOSUPPRESSANTS [Concomitant]
     Dosage: UNK
  4. PLAQUENIL [Concomitant]
     Indication: SJOGREN'S SYNDROME
     Dosage: 200 MG
     Route: 048
     Dates: start: 19980901
  5. RESTASIS [Concomitant]
     Indication: SJOGREN'S SYNDROME
     Dosage: 0.5 %
     Dates: start: 20050101

REACTIONS (11)
  - ABNORMAL FAECES [None]
  - ASTHENIA [None]
  - BLINDNESS [None]
  - BURNING SENSATION [None]
  - DIARRHOEA [None]
  - DYSURIA [None]
  - INSOMNIA [None]
  - MUSCLE SPASMS [None]
  - NAUSEA [None]
  - RENAL IMPAIRMENT [None]
  - URINE ODOUR ABNORMAL [None]
